FAERS Safety Report 19724189 (Version 1)
Quarter: 2021Q3

REPORT INFORMATION
  Report Type: Spontaneous
  Country: US (occurrence: US)
  Receive Date: 20210819
  Receipt Date: 20210819
  Transmission Date: 20211014
  Serious: Yes (Other)
  Sender: FDA-Public Use
  Company Number: US-ROCHE-2892355

PATIENT

DRUGS (1)
  1. VALIUM [Suspect]
     Active Substance: DIAZEPAM
     Indication: POST-TRAUMATIC STRESS DISORDER
     Route: 065

REACTIONS (8)
  - Fibromyalgia [Unknown]
  - Impaired work ability [Unknown]
  - Drug abuse [Unknown]
  - Spinal fracture [Unknown]
  - Intentional product use issue [Unknown]
  - Claustrophobia [Unknown]
  - Off label use [Unknown]
  - Head injury [Unknown]
